FAERS Safety Report 9837879 (Version 1)
Quarter: 2014Q1

REPORT INFORMATION
  Report Type: Spontaneous
  Country: RO (occurrence: RO)
  Receive Date: 20140123
  Receipt Date: 20140123
  Transmission Date: 20141002
  Serious: Yes (Death)
  Sender: FDA-Public Use
  Company Number: RO-JNJFOC-20140110688

PATIENT
  Sex: 0

DRUGS (7)
  1. REMICADE [Suspect]
     Indication: CROHN^S DISEASE
     Route: 042
  2. METRONIDAZOLE [Concomitant]
     Indication: CROHN^S DISEASE
     Route: 065
  3. CIPROFLOXACIN [Concomitant]
     Indication: CROHN^S DISEASE
     Route: 065
  4. CYCLOSPORIN A [Concomitant]
     Indication: CROHN^S DISEASE
     Route: 065
  5. 5-ASA [Concomitant]
     Route: 065
  6. AZATHIOPRINE [Concomitant]
     Route: 065
  7. 6-MERCAPTOPURINE [Concomitant]
     Route: 065

REACTIONS (2)
  - Disseminated intravascular coagulation [Fatal]
  - Sepsis [Fatal]
